FAERS Safety Report 8568765-5 (Version None)
Quarter: 2012Q3

REPORT INFORMATION
  Report Type: 
  Country: None (occurrence: None)
  Receive Date: 20120803
  Receipt Date: 20120130
  Transmission Date: 20120928
  Serious: No
  Sender: FDA-Public Use
  Company Number: US-ABBOTT-12P-163-0900158-00

PATIENT
  Sex: Female
  Weight: 79.45 kg

DRUGS (14)
  1. ACTONEL [Concomitant]
     Indication: OSTEOPOROSIS
  2. MILK THISTLE [Concomitant]
     Indication: SUPPLEMENTATION THERAPY
  3. WELLCHOL [Concomitant]
     Indication: BLOOD CHOLESTEROL INCREASED
  4. COUMADIN [Concomitant]
     Indication: HEART VALVE REPLACEMENT
  5. CALCIUM [Concomitant]
     Indication: SUPPLEMENTATION THERAPY
  6. CHOLESTOFF [Concomitant]
     Indication: BLOOD CHOLESTEROL INCREASED
  7. TRAMADOL HCL [Concomitant]
     Indication: PAIN
  8. ATENOLOL [Concomitant]
     Indication: HYPERTENSION
  9. METFORMIN HYDROCHLORIDE [Concomitant]
     Indication: DIABETES MELLITUS
  10. FLEXERIL [Concomitant]
     Indication: PAIN
  11. NIASPAN [Suspect]
     Indication: BLOOD CHOLESTEROL INCREASED
     Dates: start: 20111201
  12. LOVASA [Concomitant]
     Indication: BLOOD CHOLESTEROL INCREASED
  13. LISINOPRIL [Concomitant]
     Indication: HYPERTENSION
  14. VITAMIN D [Concomitant]
     Indication: SUPPLEMENTATION THERAPY

REACTIONS (5)
  - FEELING HOT [None]
  - URTICARIA [None]
  - FLUSHING [None]
  - PRURITUS [None]
  - SENSE OF OPPRESSION [None]
